FAERS Safety Report 8429679-4 (Version None)
Quarter: 2012Q2

REPORT INFORMATION
  Report Type: 
  Country: None (occurrence: None)
  Receive Date: 20120612
  Receipt Date: 20120604
  Transmission Date: 20120825
  Serious: Yes (Hospitalization)
  Sender: FDA-Public Use
  Company Number: SE-UCBSA-058922

PATIENT
  Age: 57 Year
  Sex: Female

DRUGS (2)
  1. KEPPRA [Suspect]
     Indication: EPILEPSY
     Dosage: 250 MG TABLET
     Route: 048
     Dates: start: 20120104, end: 20120503
  2. KEPPRA [Suspect]
     Indication: CONVULSION
     Dosage: 250 MG TABLET
     Route: 048
     Dates: start: 20120104, end: 20120503

REACTIONS (4)
  - EPISTAXIS [None]
  - THROMBOCYTOPENIA [None]
  - MYALGIA [None]
  - ANAEMIA [None]
